FAERS Safety Report 5398227-8 (Version None)
Quarter: 2007Q3

REPORT INFORMATION
  Report Type: 
  Country: None (occurrence: None)
  Receive Date: 20070726
  Receipt Date: 20070719
  Transmission Date: 20080115
  Serious: Yes (Other)
  Sender: FDA-Public Use
  Company Number: KP-ROXANE LABORATORIES, INC-2007-BP-17850RO

PATIENT
  Age: 65 Year
  Sex: Female

DRUGS (7)
  1. DEXAMETHASONE 0.5MG TAB [Suspect]
     Indication: CHEMOTHERAPY
     Dosage: 10 MG X 8 DAYS/CYCLE (DAYS 1-12)
     Dates: start: 20060401
  2. PREDNISONE TAB [Suspect]
     Indication: CHEMOTHERAPY
     Dates: start: 20060101, end: 20060401
  3. CYCLOPHOSPHAMIDE [Suspect]
     Indication: CHEMOTHERAPY
     Dates: start: 20060101, end: 20060401
  4. MELPHALAN [Suspect]
     Indication: CHEMOTHERAPY
     Dates: start: 20060101, end: 20060401
  5. VINCRISTINE [Suspect]
     Indication: CHEMOTHERAPY
     Dates: start: 20060101, end: 20060401
  6. CARMUSTINE [Suspect]
     Indication: CHEMOTHERAPY
     Dates: start: 20060101, end: 20060401
  7. BORTEZOMIB [Suspect]
     Indication: CHEMOTHERAPY
     Dosage: 1.3 MG/M2 X 4 DAYS/CYCLE (DAYS 1, 4, 8, 11)
     Dates: start: 20060401

REACTIONS (8)
  - ABDOMINAL DISCOMFORT [None]
  - FAECAL INCONTINENCE [None]
  - HERPES ZOSTER [None]
  - NEURALGIA [None]
  - PAINFUL DEFAECATION [None]
  - PSEUDOMEMBRANOUS COLITIS [None]
  - RASH ERYTHEMATOUS [None]
  - RASH PUSTULAR [None]
